FAERS Safety Report 8407869-4 (Version None)
Quarter: 2012Q2

REPORT INFORMATION
  Report Type: 
  Country: None (occurrence: None)
  Receive Date: 20120604
  Receipt Date: 20120525
  Transmission Date: 20120825
  Serious: Yes (Other)
  Sender: FDA-Public Use
  Company Number: KR-ABBOTT-12P-090-0929875-00

PATIENT
  Age: 44 Year
  Sex: Female
  Weight: 39 kg

DRUGS (2)
  1. HUMIRA [Suspect]
     Indication: CROHN'S DISEASE
     Route: 058
     Dates: start: 20120101
  2. STEROID [Concomitant]
     Indication: PRODUCT USED FOR UNKNOWN INDICATION

REACTIONS (6)
  - ASTHENIA [None]
  - PULMONARY OEDEMA [None]
  - CONDITION AGGRAVATED [None]
  - CARDIAC FAILURE [None]
  - STRESS CARDIOMYOPATHY [None]
  - CROHN'S DISEASE [None]
